FAERS Safety Report 24002214 (Version 1)
Quarter: 2024Q2

REPORT INFORMATION
  Report Type: Spontaneous
  Country: US (occurrence: US)
  Receive Date: 20240622
  Receipt Date: 20240622
  Transmission Date: 20240716
  Serious: No
  Sender: FDA-Public Use
  Company Number: US-AMGEN-USASP2024119371

PATIENT
  Sex: Female

DRUGS (6)
  1. PROLIA [Suspect]
     Active Substance: DENOSUMAB
     Indication: Product used for unknown indication
     Dosage: UNK
     Route: 065
     Dates: start: 20240514
  2. VITAMIN D3 [Concomitant]
     Active Substance: CHOLECALCIFEROL
     Dosage: 25 MICROGRAM (D31000 IU)
     Route: 065
  3. VITAMIN D3 [Concomitant]
     Active Substance: CHOLECALCIFEROL
     Dosage: 20 MICROGRAM (800 IU)
     Route: 065
  4. VITAMIN D3 [Concomitant]
     Active Substance: CHOLECALCIFEROL
     Dosage: 10 MICROGRAM (400 IU)
     Route: 065
  5. CALTRATE 600 PLUS [Concomitant]
     Dosage: UNK
     Route: 065
  6. CALTRATE 600 PLUS [Concomitant]
     Route: 065

REACTIONS (6)
  - Anxiety [Unknown]
  - Rash [Unknown]
  - Urticaria [Unknown]
  - Insomnia [Unknown]
  - Feeling jittery [Unknown]
  - Headache [Unknown]

NARRATIVE: CASE EVENT DATE: 20240101
